FAERS Safety Report 20361767 (Version 1)
Quarter: 2022Q1

REPORT INFORMATION
  Report Type: Spontaneous
  Country: US (occurrence: None)
  Receive Date: 20220120
  Receipt Date: 20220120
  Transmission Date: 20220423
  Serious: Yes (Other)
  Sender: FDA-Public Use
  Company Number: None

PATIENT
  Age: 24 Year
  Sex: Female
  Weight: 59.4 kg

DRUGS (1)
  1. VENOFER [Suspect]
     Active Substance: IRON SUCROSE
     Indication: Iron deficiency anaemia
     Dosage: OTHER FREQUENCY : WEEKLY;?
     Route: 042
     Dates: start: 20220112

REACTIONS (6)
  - Pruritus [None]
  - Rash [None]
  - Peripheral swelling [None]
  - Diarrhoea [None]
  - Cold sweat [None]
  - Peripheral swelling [None]

NARRATIVE: CASE EVENT DATE: 20220119
